FAERS Safety Report 25366678 (Version 1)
Quarter: 2025Q2

REPORT INFORMATION
  Report Type: Spontaneous
  Country: CH (occurrence: CH)
  Receive Date: 20250528
  Receipt Date: 20250528
  Transmission Date: 20250717
  Serious: Yes (Disabling, Other)
  Sender: ABBVIE
  Company Number: CH-ABBVIE-6299253

PATIENT
  Age: 55 Year
  Sex: Male
  Weight: 85 kg

DRUGS (3)
  1. SKYRIZI [Suspect]
     Active Substance: RISANKIZUMAB-RZAA
     Indication: Crohn^s disease
     Route: 058
     Dates: start: 20240726
  2. Metamizole sodium (Novalgin) [Concomitant]
     Indication: Product used for unknown indication
     Route: 048
  3. Pantoprazole sodium sesquihydrate (Pantoprazol) [Concomitant]
     Indication: Gastrooesophageal reflux disease
     Route: 048

REACTIONS (4)
  - Neuropathy peripheral [Not Recovered/Not Resolved]
  - Muscular weakness [Unknown]
  - Gait disturbance [Unknown]
  - Monoparesis [Unknown]

NARRATIVE: CASE EVENT DATE: 20250218
